FAERS Safety Report 17870515 (Version 1)
Quarter: 2020Q2

REPORT INFORMATION
  Report Type: Spontaneous
  Country: US (occurrence: US)
  Receive Date: 20200608
  Receipt Date: 20200608
  Transmission Date: 20200714
  Serious: No
  Sender: FDA-Public Use
  Company Number: US-PFIZER INC-2020221893

PATIENT
  Age: 48 Year
  Sex: Male

DRUGS (2)
  1. UCERIS [Concomitant]
     Active Substance: BUDESONIDE
     Dosage: UNK
  2. XELJANZ [Suspect]
     Active Substance: TOFACITINIB CITRATE
     Indication: COLITIS ULCERATIVE
     Dosage: 5 MG, TWO TIMES A DAY
     Route: 048
     Dates: start: 201908, end: 20200528

REACTIONS (2)
  - Urinary tract infection [Unknown]
  - Fatigue [Unknown]
